FAERS Safety Report 8351198-4 (Version None)
Quarter: 2012Q2

REPORT INFORMATION
  Report Type: 
  Country: None (occurrence: None)
  Receive Date: 20120510
  Receipt Date: 20120507
  Transmission Date: 20120825
  Serious: Yes (Hospitalization, Other)
  Sender: FDA-Public Use
  Company Number: SE-ABBOTT-12P-150-0924988-00

PATIENT
  Sex: Female

DRUGS (4)
  1. METHOTREXATE [Concomitant]
     Dates: start: 20110301
  2. HUMIRA [Suspect]
     Indication: ANKYLOSING SPONDYLITIS
     Dosage: WHEN NEEDED
     Route: 058
     Dates: start: 20110926, end: 20120110
  3. ENBREL [Suspect]
     Indication: ANKYLOSING SPONDYLITIS
     Route: 058
     Dates: start: 20110325, end: 20110912
  4. METHOTREXATE [Concomitant]
     Indication: PRODUCT USED FOR UNKNOWN INDICATION
     Dates: start: 20030101, end: 20040101

REACTIONS (8)
  - PYREXIA [None]
  - PAROTID GLAND ENLARGEMENT [None]
  - FACIAL NERVE DISORDER [None]
  - HILAR LYMPHADENOPATHY [None]
  - SARCOIDOSIS [None]
  - UPPER RESPIRATORY TRACT INFECTION [None]
  - HEERFORDT'S SYNDROME [None]
  - INJECTION SITE ERYTHEMA [None]
